FAERS Safety Report 4928885-0 (Version None)
Quarter: 2006Q1

REPORT INFORMATION
  Report Type: 
  Country: None (occurrence: None)
  Receive Date: 20060223
  Receipt Date: 20060214
  Transmission Date: 20060701
  Serious: Yes (Death, Other)
  Sender: FDA-Public Use
  Company Number: 2006-02-0760

PATIENT
  Sex: Male

DRUGS (2)
  1. TEMODAR [Suspect]
     Dosage: 75MG/M^2 ORAL
     Route: 048
  2. RADIATION THERAPY [Suspect]

REACTIONS (1)
  - BONE MARROW FAILURE [None]
